FAERS Safety Report 6844736-1 (Version None)
Quarter: 2010Q3

REPORT INFORMATION
  Report Type: 
  Country: None (occurrence: None)
  Receive Date: 20100715
  Receipt Date: 20100707
  Transmission Date: 20110219
  Serious: Yes (Death)
  Sender: FDA-Public Use
  Company Number: JP-ALLERGAN-1008871US

PATIENT
  Age: 97 Year
  Sex: Female

DRUGS (1)
  1. BOTOX INJECTION 100 [Suspect]
     Indication: TORTICOLLIS
     Dosage: 100 UNITS, SINGLE
     Route: 030
     Dates: start: 20090302, end: 20090302

REACTIONS (1)
  - DEATH [None]
